FAERS Safety Report 15311870 (Version 1)
Quarter: 2018Q3

REPORT INFORMATION
  Report Type: Report from Study
  Country: None (occurrence: US)
  Receive Date: 20180823
  Receipt Date: 20180823
  Transmission Date: 20181010
  Serious: Yes (Other)
  Sender: FDA-Public Use
  Company Number: US-ABBVIE-18S-163-2457835-00

PATIENT
  Age: 61 Year
  Sex: Male

DRUGS (1)
  1. DUOPA [Suspect]
     Active Substance: CARBIDOPA\LEVODOPA
     Indication: PARKINSON^S DISEASE
     Route: 050
     Dates: start: 20180412

REACTIONS (4)
  - Asthenia [Not Recovered/Not Resolved]
  - Unresponsive to stimuli [Unknown]
  - Tremor [Not Recovered/Not Resolved]
  - Glassy eyes [Not Recovered/Not Resolved]

NARRATIVE: CASE EVENT DATE: 201807
